FAERS Safety Report 7870401-8 (Version None)
Quarter: 2011Q4

REPORT INFORMATION
  Report Type: 
  Country: None (occurrence: None)
  Receive Date: 20111029
  Receipt Date: 20110309
  Transmission Date: 20120403
  Serious: Yes (Hospitalization)
  Sender: FDA-Public Use
  Company Number: US-AMGEN-USASP2011013298

PATIENT
  Age: 68 Year
  Sex: Male

DRUGS (1)
  1. ENBREL [Suspect]
     Indication: RHEUMATOID ARTHRITIS
     Dosage: 50 MG, QWK
     Dates: start: 20100115, end: 20110101

REACTIONS (5)
  - BRONCHITIS [None]
  - INFECTION [None]
  - EAR INFECTION [None]
  - PNEUMONIA [None]
  - RHEUMATOID ARTHRITIS [None]
